FAERS Safety Report 17394385 (Version 4)
Quarter: 2020Q3

REPORT INFORMATION
  Report Type: Spontaneous
  Country: FR (occurrence: FR)
  Receive Date: 20200210
  Receipt Date: 20200907
  Transmission Date: 20201102
  Serious: Yes (Hospitalization)
  Sender: FDA-Public Use
  Company Number: FR-SUN PHARMACEUTICAL INDUSTRIES LTD-2020RR-235957

PATIENT
  Age: 55 Year
  Sex: Male
  Weight: 89 kg

DRUGS (12)
  1. LANSOPRAZOLE. [Suspect]
     Active Substance: LANSOPRAZOLE
     Indication: PRODUCT USED FOR UNKNOWN INDICATION
     Dosage: 30 MILLIGRAM, DAILY
     Route: 048
     Dates: start: 201912, end: 20191225
  2. NICOPATCHLIB [Suspect]
     Active Substance: NICOTINE
     Indication: EX-TOBACCO USER
  3. PRINCI B1+B6 [Suspect]
     Active Substance: PYRIDOXINE\THIAMINE
     Dosage: 3 DOSAGE FORM, DAILY
     Route: 048
     Dates: start: 201912, end: 20191225
  4. PRINCI B1+B6 [Suspect]
     Active Substance: PYRIDOXINE\THIAMINE
     Indication: PRODUCT USED FOR UNKNOWN INDICATION
  5. RAMIPRIL. [Suspect]
     Active Substance: RAMIPRIL
     Indication: MYOCARDIAL INFARCTION
     Dosage: 2.5 MILLIGRAM, DAILY
     Route: 048
     Dates: start: 201912, end: 20191225
  6. NICOPATCHLIB [Suspect]
     Active Substance: NICOTINE
     Dosage: ()
     Route: 062
     Dates: start: 201912, end: 20191225
  7. ATORVASTATINE [Suspect]
     Active Substance: ATORVASTATIN
     Indication: MYOCARDIAL INFARCTION
     Dosage: 80 MILLIGRAM, DAILY
     Route: 048
     Dates: start: 201912, end: 20191225
  8. BISOPROLOL [Suspect]
     Active Substance: BISOPROLOL
     Indication: MYOCARDIAL INFARCTION
     Dosage: 5 MILLIGRAM, DAILY
     Route: 048
     Dates: start: 201912, end: 20191225
  9. FUROSEMIDE. [Suspect]
     Active Substance: FUROSEMIDE
     Indication: MYOCARDIAL INFARCTION
     Dosage: 40 MILLIGRAM, DAILY
     Route: 048
     Dates: start: 201912, end: 20191225
  10. NICOPATCHLIB [Suspect]
     Active Substance: NICOTINE
     Indication: EX-TOBACCO USER
  11. SERESTA [Suspect]
     Active Substance: OXAZEPAM
     Indication: PRODUCT USED FOR UNKNOWN INDICATION
     Dosage: 1 DOSAGE FORM, DAILY
     Route: 048
     Dates: start: 201912, end: 20191225
  12. BRILIQUE [Suspect]
     Active Substance: TICAGRELOR
     Indication: MYOCARDIAL INFARCTION
     Dosage: 90 MILLIGRAM, DAILY
     Route: 048
     Dates: start: 201912, end: 20191225

REACTIONS (2)
  - Thrombotic microangiopathy [Recovered/Resolved]
  - Hepatocellular injury [Recovered/Resolved]

NARRATIVE: CASE EVENT DATE: 20191222
